FAERS Safety Report 7080506-X (Version None)
Quarter: 2010Q4

REPORT INFORMATION
  Report Type: 
  Country: None (occurrence: None)
  Receive Date: 20101025
  Receipt Date: 20101007
  Transmission Date: 20110411
  Serious: Yes (Other)
  Sender: FDA-Public Use
  Company Number: THQ2010A01324

PATIENT
  Age: 34 Year
  Sex: Female

DRUGS (3)
  1. ACTOPLUS MET [Suspect]
     Indication: DIABETES MELLITUS
     Dosage: PIOGLITAZONE HYDROCHLORIDE 15 MG + METFORMIN HYDROCHLORIDE 850 MG (1 D), PER ORAL
     Route: 048
     Dates: start: 20090401, end: 20090625
  2. LANTUS [Concomitant]
  3. GLUCOBAY [Concomitant]

REACTIONS (5)
  - ABORTION MISSED [None]
  - ABORTION SPONTANEOUS [None]
  - DRUG EXPOSURE DURING PREGNANCY [None]
  - ECTOPIC PREGNANCY [None]
  - PREGNANCY [None]
